FAERS Safety Report 26122806 (Version 2)
Quarter: 2025Q4

REPORT INFORMATION
  Report Type: Spontaneous
  Country: US (occurrence: US)
  Receive Date: 20251204
  Receipt Date: 20251214
  Transmission Date: 20260117
  Serious: No
  Sender: SERVIER
  Company Number: US-SERVIER-S25015706

PATIENT

DRUGS (2)
  1. VORANIGO [Suspect]
     Active Substance: VORASIDENIB
     Indication: Brain neoplasm malignant
     Dosage: 40 MG, QD
     Route: 048
     Dates: start: 20250813, end: 202510
  2. VORANIGO [Suspect]
     Active Substance: VORASIDENIB
     Dosage: UNK
     Route: 048
     Dates: start: 202512

REACTIONS (2)
  - Alanine aminotransferase increased [Recovering/Resolving]
  - Aspartate aminotransferase increased [Recovering/Resolving]

NARRATIVE: CASE EVENT DATE: 20251001
